FAERS Safety Report 11232177 (Version 1)
Quarter: 2015Q2

REPORT INFORMATION
  Report Type: Spontaneous
  Country: US (occurrence: None)
  Receive Date: 20150630
  Receipt Date: 20150630
  Transmission Date: 20150821
  Serious: Yes (Hospitalization)
  Sender: FDA-Public Use
  Company Number: None

PATIENT
  Age: 55 Year
  Sex: Female

DRUGS (1)
  1. HARVONI [Suspect]
     Active Substance: LEDIPASVIR\SOFOSBUVIR
     Indication: HEPATITIS C
     Dosage: 1 PILL, QD, ORAL
     Route: 048

REACTIONS (3)
  - Stent placement [None]
  - Coronary artery bypass [None]
  - Cardiac operation [None]

NARRATIVE: CASE EVENT DATE: 20150622
